FAERS Safety Report 6098507-7 (Version None)
Quarter: 2009Q1

REPORT INFORMATION
  Report Type: 
  Country: None (occurrence: None)
  Receive Date: 20090302
  Receipt Date: 20090220
  Transmission Date: 20090719
  Serious: Yes (Other)
  Sender: FDA-Public Use
  Company Number: FR-AMGEN-UK321242

PATIENT
  Sex: Male
  Weight: 90 kg

DRUGS (4)
  1. ROMIPLOSTIM [Suspect]
     Indication: IDIOPATHIC THROMBOCYTOPENIC PURPURA
     Route: 058
     Dates: start: 20081003, end: 20081112
  2. IMMUNOGLOBULINS [Concomitant]
     Dates: start: 20080601
  3. MABTHERA [Concomitant]
     Dates: start: 20080810
  4. NEORAL [Concomitant]
     Route: 065

REACTIONS (1)
  - THERAPEUTIC RESPONSE DECREASED [None]
